FAERS Safety Report 8296248-9 (Version None)
Quarter: 2012Q2

REPORT INFORMATION
  Report Type: 
  Country: None (occurrence: None)
  Receive Date: 20120418
  Receipt Date: 20120410
  Transmission Date: 20120825
  Serious: Yes (Hospitalization, Other)
  Sender: FDA-Public Use
  Company Number: CHPA2012US002980

PATIENT
  Age: 71 Year
  Sex: Female

DRUGS (6)
  1. CELEBREX [Suspect]
     Dosage: UNK, UNK
     Route: 048
  2. NICOTINE [Suspect]
     Dosage: 7 MG, QD
     Route: 062
  3. NICOTINE [Suspect]
     Indication: SMOKING CESSATION THERAPY
     Dosage: 21 MG, QD
     Route: 062
  4. TYLENOL (CAPLET) [Suspect]
     Dosage: 1300 MG, UNK
     Route: 048
  5. NICOTINE [Suspect]
     Dosage: 14 MG, QD
     Route: 062
  6. MUCINEX [Concomitant]

REACTIONS (7)
  - LIVER INJURY [None]
  - DRUG INEFFECTIVE [None]
  - RENAL FAILURE [None]
  - INCORRECT DRUG ADMINISTRATION DURATION [None]
  - FALL [None]
  - OVERDOSE [None]
  - TREATMENT NONCOMPLIANCE [None]
